FAERS Safety Report 9498360 (Version 1)
Quarter: 2013Q3

REPORT INFORMATION
  Report Type: Report from Study
  Country: CA (occurrence: CA)
  Receive Date: 20130904
  Receipt Date: 20130904
  Transmission Date: 20140515
  Serious: Yes (Other)
  Sender: FDA-Public Use
  Company Number: CA-JNJFOC-20130900105

PATIENT
  Sex: Female
  Weight: 72.58 kg

DRUGS (1)
  1. SIMPONI [Suspect]
     Indication: PSORIASIS
     Route: 058
     Dates: start: 2011

REACTIONS (6)
  - Back pain [Unknown]
  - Musculoskeletal pain [Unknown]
  - Apnoea [Unknown]
  - Stress [Unknown]
  - Weight fluctuation [Unknown]
  - Psoriasis [Unknown]
